FAERS Safety Report 6313900-2 (Version None)
Quarter: 2009Q3

REPORT INFORMATION
  Report Type: 
  Country: None (occurrence: None)
  Receive Date: 20090818
  Receipt Date: 20090813
  Transmission Date: 20100115
  Serious: Yes (Hospitalization)
  Sender: FDA-Public Use
  Company Number: ES-WYE-G03667309

PATIENT
  Age: 53 Year
  Sex: Female

DRUGS (5)
  1. RAPAMUNE [Suspect]
     Indication: TRANSPLANT
     Route: 048
     Dates: start: 20080308
  2. PREDNISONE [Concomitant]
     Indication: TRANSPLANT
     Dosage: 10 MG
     Route: 048
     Dates: start: 20080308
  3. PANTOPRAZOLE SODIUM [Suspect]
     Route: 048
     Dates: start: 20080308
  4. LEDERFOLIN [Concomitant]
     Dosage: 15 MG
     Route: 048
  5. CELLCEPT [Suspect]
     Indication: TRANSPLANT
     Route: 048
     Dates: start: 20080308, end: 20080610

REACTIONS (3)
  - AGRANULOCYTOSIS [None]
  - APHTHOUS STOMATITIS [None]
  - FEBRILE NEUTROPENIA [None]
